FAERS Safety Report 8301386-8 (Version None)
Quarter: 2012Q2

REPORT INFORMATION
  Report Type: 
  Country: None (occurrence: None)
  Receive Date: 20120420
  Receipt Date: 20120413
  Transmission Date: 20120825
  Serious: Yes (Hospitalization)
  Sender: FDA-Public Use
  Company Number: TR-ROCHE-1059441

PATIENT
  Sex: Male

DRUGS (2)
  1. XELODA [Suspect]
     Indication: METASTASES TO LIVER
  2. XELODA [Suspect]
     Indication: COLON CANCER
     Route: 048

REACTIONS (1)
  - DISEASE PROGRESSION [None]
